FAERS Safety Report 8402791-1 (Version None)
Quarter: 2012Q2

REPORT INFORMATION
  Report Type: 
  Country: None (occurrence: None)
  Receive Date: 20120601
  Receipt Date: 20120522
  Transmission Date: 20120825
  Serious: Yes (Hospitalization)
  Sender: FDA-Public Use
  Company Number: US-ABBOTT-12P-163-0938536-00

PATIENT
  Sex: Male

DRUGS (1)
  1. HUMIRA [Suspect]
     Indication: CROHN'S DISEASE
     Dates: start: 20111201

REACTIONS (3)
  - WHITE BLOOD CELL COUNT INCREASED [None]
  - URETHRAL DILATATION [None]
  - RENAL TUBULAR DISORDER [None]
